FAERS Safety Report 6732135-2 (Version None)
Quarter: 2010Q2

REPORT INFORMATION
  Report Type: 
  Country: None (occurrence: None)
  Receive Date: 20100519
  Receipt Date: 20100511
  Transmission Date: 20101027
  Serious: Yes (Death)
  Sender: FDA-Public Use
  Company Number: US-SANOFI-AVENTIS-2010SA020281

PATIENT
  Age: 95 Year
  Sex: Male

DRUGS (2)
  1. PLAVIX [Suspect]
     Indication: PULMONARY EMBOLISM
     Route: 048
     Dates: end: 20100314
  2. COUMADIN [Suspect]
     Route: 065
     Dates: end: 20100314

REACTIONS (2)
  - CARDIAC FAILURE CONGESTIVE [None]
  - OFF LABEL USE [None]
